FAERS Safety Report 4407478-8 (Version None)
Quarter: 2004Q3

REPORT INFORMATION
  Report Type: 
  Country: None (occurrence: None)
  Receive Date: 20040721
  Receipt Date: 20040707
  Transmission Date: 20050211
  Serious: Yes (Other)
  Sender: FDA-Public Use
  Company Number: 2004-UK-00661UK

PATIENT
  Age: 58 Year
  Sex: Female

DRUGS (5)
  1. TIOTROPIUM (00015/0190/A) (TIOTROPIUM BROMIDE) (KAI) [Suspect]
     Indication: CHRONIC OBSTRUCTIVE AIRWAYS DISEASE
     Dosage: 18 MCG (NR) IH
     Route: 055
     Dates: start: 20021220, end: 20040507
  2. CALCICHEW D3 (LEKOVIT CA) (TA) [Concomitant]
  3. SALBUTAMOL (SALBUTAMOL) (NR) [Concomitant]
  4. ZOLPIDEM (ZOLPIDEM) (NR) [Concomitant]
  5. SALMETEROL (SALMETEROL) (NR) [Concomitant]

REACTIONS (3)
  - GLOSSITIS [None]
  - THERAPY NON-RESPONDER [None]
  - TONGUE BLISTERING [None]
